APPROVED DRUG PRODUCT: LOPERAMIDE HYDROCHLORIDE
Active Ingredient: LOPERAMIDE HYDROCHLORIDE
Strength: 1MG/7.5ML
Dosage Form/Route: SOLUTION;ORAL
Application: A091292 | Product #001
Applicant: PERRIGO R AND D CO
Approved: May 20, 2011 | RLD: No | RS: No | Type: OTC